FAERS Safety Report 7578011-7 (Version None)
Quarter: 2011Q2

REPORT INFORMATION
  Report Type: 
  Country: None (occurrence: None)
  Receive Date: 20110628
  Receipt Date: 20110613
  Transmission Date: 20111010
  Serious: Yes (Hospitalization)
  Sender: FDA-Public Use
  Company Number: US-ROCHE-785097

PATIENT
  Sex: Female
  Weight: 106.8 kg

DRUGS (1)
  1. TRASTUZUMAB [Suspect]
     Indication: BREAST CANCER
     Route: 042
     Dates: start: 20060101, end: 20070101

REACTIONS (5)
  - DYSPNOEA [None]
  - ASTHMA [None]
  - COUGH [None]
  - INCREASED UPPER AIRWAY SECRETION [None]
  - TRAUMATIC LUNG INJURY [None]
